FAERS Safety Report 22339599 (Version 1)
Quarter: 2023Q2

REPORT INFORMATION
  Report Type: Spontaneous
  Country: US (occurrence: None)
  Receive Date: 20230517
  Receipt Date: 20230517
  Transmission Date: 20230722
  Serious: No
  Sender: FDA-Public Use
  Company Number: None

PATIENT
  Age: 68 Year
  Sex: Female
  Weight: 118.39 kg

DRUGS (35)
  1. IBRANCE [Suspect]
     Active Substance: PALBOCICLIB
     Indication: Breast cancer female
     Dosage: OTHER FREQUENCY : 3WKSON,1OFF;?
     Route: 048
  2. ALBUTEROL [Concomitant]
     Active Substance: ALBUTEROL
  3. ALENDRONATE [Concomitant]
     Active Substance: ALENDRONATE SODIUM
  4. ARIPIPRAZOLE [Concomitant]
     Active Substance: ARIPIPRAZOLE
  5. ASPIRIN [Concomitant]
     Active Substance: ASPIRIN
  6. BENZONATATE [Concomitant]
     Active Substance: BENZONATATE
  7. BUSPIRONE [Concomitant]
     Active Substance: BUSPIRONE HYDROCHLORIDE
  8. CARBOXYMETHYLCELLULOSE [Concomitant]
     Active Substance: CARBOXYMETHYLCELLULOSE
  9. CETIRINE [Concomitant]
  10. CLOTRIMAZOLE [Concomitant]
     Active Substance: CLOTRIMAZOLE
  11. DULOXETINE [Concomitant]
     Active Substance: DULOXETINE
  12. FAMOTIDINE [Concomitant]
     Active Substance: FAMOTIDINE
  13. FASLODEX [Concomitant]
     Active Substance: FULVESTRANT
  14. FLUNISOLIDE [Concomitant]
     Active Substance: FLUNISOLIDE
  15. FOLIC ACID [Concomitant]
  16. FUROSEMIDE [Concomitant]
     Active Substance: FUROSEMIDE
  17. GABAPENTIN [Concomitant]
     Active Substance: GABAPENTIN
  18. ISOSORBIDE [Concomitant]
     Active Substance: ISOSORBIDE
  19. LIDODERM [Concomitant]
     Active Substance: LIDOCAINE
  20. LOSARTAN [Concomitant]
     Active Substance: LOSARTAN
  21. MAGNESIUM [Concomitant]
     Active Substance: MAGNESIUM
  22. METOLAZONE [Concomitant]
     Active Substance: METOLAZONE
  23. MOMETASONE [Concomitant]
     Active Substance: MOMETASONE
  24. VITAMINS [Concomitant]
     Active Substance: VITAMINS
  25. NAPHAZOLINE [Concomitant]
     Active Substance: NAPHAZOLINE\NAPHAZOLINE HYDROCHLORIDE
  26. NITROSTAT [Concomitant]
     Active Substance: NITROGLYCERIN
  27. ONDANSETRON [Concomitant]
     Active Substance: ONDANSETRON
  28. OXYCODONE [Concomitant]
     Active Substance: OXYCODONE
  29. PANTOPRAZOLE [Concomitant]
     Active Substance: PANTOPRAZOLE
  30. POTASSIUM [Concomitant]
     Active Substance: POTASSIUM
  31. REFRESH CLASSIC [Concomitant]
     Active Substance: POLYVINYL ALCOHOL\POVIDONE
  32. SPIRIVA [Concomitant]
     Active Substance: TIOTROPIUM BROMIDE MONOHYDRATE
  33. VITAMIN B COMPLEX [Concomitant]
  34. VITAMIN C [Concomitant]
  35. VITAMIN D [Concomitant]
     Active Substance: VITAMIN D NOS

REACTIONS (1)
  - Dyspepsia [None]

NARRATIVE: CASE EVENT DATE: 20230503
